FAERS Safety Report 4502653-6 (Version None)
Quarter: 2004Q3

REPORT INFORMATION
  Report Type: 
  Country: None (occurrence: None)
  Receive Date: 20040928
  Receipt Date: 20040614
  Transmission Date: 20050211
  Serious: No
  Sender: FDA-Public Use
  Company Number: 04P-163-0262911-00

PATIENT
  Age: 42 Year
  Sex: Female
  Weight: 51.0297 kg

DRUGS (7)
  1. HUMIRA [Suspect]
     Indication: RHEUMATOID ARTHRITIS
     Dosage: 40 MG, 1 IN 2 WK, SUBCUTANEOUS
     Route: 058
     Dates: start: 20040401
  2. METHOTREXATE SODIUM [Concomitant]
  3. HYDROXYCHLOROQUINE PHOSPHATE [Concomitant]
  4. LANSOPRAZOLE [Concomitant]
  5. SUCRALFATE [Concomitant]
  6. AMILORIDE [Concomitant]
  7. VENLAFAXINE HCL [Concomitant]

REACTIONS (3)
  - FATIGUE [None]
  - INJECTION SITE BURNING [None]
  - MEDICATION ERROR [None]
